FAERS Safety Report 6179097-7 (Version None)
Quarter: 2009Q2

REPORT INFORMATION
  Report Type: 
  Country: None (occurrence: None)
  Receive Date: 20090505
  Receipt Date: 20090428
  Transmission Date: 20091009
  Serious: Yes (Death)
  Sender: FDA-Public Use
  Company Number: US-CELGENEUS-163-21880-09032087

PATIENT
  Sex: Female

DRUGS (1)
  1. REVLIMID [Suspect]
     Indication: AMYLOIDOSIS
     Route: 048
     Dates: start: 20090304, end: 20090322

REACTIONS (3)
  - CONFUSIONAL STATE [None]
  - FEELING ABNORMAL [None]
  - NEOPLASM PROGRESSION [None]
